FAERS Safety Report 7494325-3 (Version None)
Quarter: 2011Q2

REPORT INFORMATION
  Report Type: 
  Country: None (occurrence: None)
  Receive Date: 20110520
  Receipt Date: 20110511
  Transmission Date: 20111010
  Serious: Yes (Hospitalization)
  Sender: FDA-Public Use
  Company Number: BE-JNJFOC-20110505851

PATIENT
  Sex: Female
  Weight: 100 kg

DRUGS (15)
  1. PLACEBO [Suspect]
     Indication: RHEUMATOID ARTHRITIS
     Route: 048
     Dates: start: 20070228, end: 20080617
  2. DUOVENT [Concomitant]
     Route: 055
     Dates: start: 19900101
  3. CARDIOASPIRINE [Concomitant]
     Route: 048
     Dates: start: 20030101
  4. BETASERC (BETAHISTINE HYDROCHLORIDE) [Concomitant]
     Route: 048
     Dates: start: 20110128
  5. FELDENE [Concomitant]
     Route: 048
     Dates: start: 20080801
  6. AVAMYS [Concomitant]
     Route: 045
     Dates: start: 20100223
  7. ZOCOR [Concomitant]
     Route: 048
     Dates: start: 20100320
  8. COZAAR [Concomitant]
     Route: 048
     Dates: start: 20010101
  9. GOLIMUMAB [Suspect]
     Route: 058
     Dates: start: 20110418
  10. GOLIMUMAB [Suspect]
     Indication: RHEUMATOID ARTHRITIS
     Route: 058
     Dates: start: 20070227
  11. SERETIDE [Concomitant]
     Route: 055
     Dates: start: 20000101
  12. OMEPRAZOLE [Concomitant]
     Route: 048
     Dates: start: 20090127
  13. DERMOVATE [Concomitant]
     Route: 061
     Dates: start: 20100803
  14. LAMISIL [Concomitant]
     Route: 061
     Dates: start: 20100803
  15. SINGULAIR [Concomitant]
     Route: 048
     Dates: start: 20000101

REACTIONS (1)
  - GASTROINTESTINAL HAEMORRHAGE [None]
